FAERS Safety Report 8102841-6 (Version None)
Quarter: 2012Q1

REPORT INFORMATION
  Report Type: 
  Country: None (occurrence: None)
  Receive Date: 20120201
  Receipt Date: 20120118
  Transmission Date: 20120608
  Serious: Yes (Hospitalization)
  Sender: FDA-Public Use
  Company Number: IE-MYLANLABS-2012S1001336

PATIENT
  Age: 60 Year
  Sex: Male

DRUGS (3)
  1. ESCITALOPRAM [Concomitant]
     Indication: DEPRESSION
     Route: 065
  2. MELOXICAM [Suspect]
     Indication: ARTHRITIS
     Route: 065
  3. ZOLPIDEM [Concomitant]
     Indication: DEPRESSION
     Route: 065

REACTIONS (5)
  - RASH ERYTHEMATOUS [None]
  - SUICIDAL BEHAVIOUR [None]
  - BLOOD PRESSURE INCREASED [None]
  - MAJOR DEPRESSION [None]
  - SUICIDAL IDEATION [None]
